FAERS Safety Report 7725732-9 (Version None)
Quarter: 2011Q3

REPORT INFORMATION
  Report Type: 
  Country: None (occurrence: None)
  Receive Date: 20110902
  Receipt Date: 20110822
  Transmission Date: 20111222
  Serious: Yes (Other)
  Sender: FDA-Public Use
  Company Number: BR-AMGEN-BRASP2011011790

PATIENT
  Age: 43 Year
  Sex: Male
  Weight: 77 kg

DRUGS (4)
  1. LEVOTHYROXINE SODIUM [Concomitant]
     Indication: HYPOTHYROIDISM
     Dosage: 50 MG, 1X/DAY
  2. PANTOPRAZOLE [Concomitant]
     Indication: GASTRITIS
     Dosage: UNK
     Dates: start: 20101001
  3. ETANERCEPT [Suspect]
     Indication: RHEUMATOID ARTHRITIS
     Dosage: 50 MG, QWK
     Route: 058
     Dates: start: 20100903
  4. PANTOZOL                           /01263202/ [Concomitant]
     Indication: GASTRITIS
     Dosage: 20 MG, QD
     Dates: start: 20101001

REACTIONS (9)
  - MUSCLE RIGIDITY [None]
  - NEUTROPHIL PERCENTAGE INCREASED [None]
  - INFECTION [None]
  - IMMUNODEFICIENCY [None]
  - INCORRECT STORAGE OF DRUG [None]
  - PYREXIA [None]
  - MYALGIA [None]
  - SPEECH DISORDER [None]
  - FOOD POISONING [None]
